FAERS Safety Report 8132680-1 (Version None)
Quarter: 2012Q1

REPORT INFORMATION
  Report Type: 
  Country: None (occurrence: None)
  Receive Date: 20120213
  Receipt Date: 20120209
  Transmission Date: 20120608
  Serious: Yes (Other)
  Sender: FDA-Public Use
  Company Number: DE-GLAXOSMITHKLINE-D0074444A

PATIENT
  Sex: Female

DRUGS (1)
  1. VOTRIENT [Suspect]
     Route: 048

REACTIONS (3)
  - MUCOSAL INFLAMMATION [None]
  - HYPERTHYROIDISM [None]
  - ALOPECIA [None]
